FAERS Safety Report 11977794 (Version 1)
Quarter: 2016Q1

REPORT INFORMATION
  Report Type: Spontaneous
  Country: US (occurrence: US)
  Receive Date: 20160129
  Receipt Date: 20160129
  Transmission Date: 20160526
  Serious: No
  Sender: FDA-Public Use
  Company Number: US-ENDO PHARMACEUTICALS INC.-2015-000413

PATIENT
  Sex: Female

DRUGS (2)
  1. HYDROCODONE BITARTRATE/APAP TABLETS 10MG/300MG [Suspect]
     Active Substance: ACETAMINOPHEN\HYDROCODONE BITARTRATE
     Indication: NERVE INJURY
  2. HYDROCODONE BITARTRATE/APAP TABLETS 10MG/300MG [Suspect]
     Active Substance: ACETAMINOPHEN\HYDROCODONE BITARTRATE
     Indication: PAIN
     Route: 065

REACTIONS (5)
  - Product quality issue [Unknown]
  - Irritability [Unknown]
  - Headache [Unknown]
  - Drug effect decreased [Unknown]
  - Agitation [Unknown]
